APPROVED DRUG PRODUCT: TROVAN PRESERVATIVE FREE
Active Ingredient: ALATROFLOXACIN MESYLATE
Strength: EQ 200MG BASE/VIAL
Dosage Form/Route: INJECTABLE;INJECTION
Application: N020760 | Product #001
Applicant: PFIZER CHEMICALS DIV PFIZER INC
Approved: Dec 18, 1997 | RLD: No | RS: No | Type: DISCN